FAERS Safety Report 15081243 (Version 1)
Quarter: 2018Q2

REPORT INFORMATION
  Report Type: Spontaneous
  Country: US (occurrence: US)
  Receive Date: 20180628
  Receipt Date: 20180628
  Transmission Date: 20180711
  Serious: Yes (Other)
  Sender: FDA-Public Use
  Company Number: US-ACCORD-065100

PATIENT
  Age: 78 Year
  Sex: Female
  Weight: 59.42 kg

DRUGS (2)
  1. CLONAZEPAM. [Suspect]
     Active Substance: CLONAZEPAM
     Indication: BIPOLAR DISORDER
     Dosage: THREE TIMES DAILY
     Route: 048
  2. VERAPAMIL [Concomitant]
     Active Substance: VERAPAMIL HYDROCHLORIDE
     Indication: BIPOLAR DISORDER

REACTIONS (8)
  - Abnormal dreams [Unknown]
  - Fatigue [Unknown]
  - Drug ineffective [Unknown]
  - Incorrect dose administered [Unknown]
  - Suicidal ideation [Unknown]
  - Fear [Unknown]
  - Sleep disorder [Unknown]
  - Impulsive behaviour [Unknown]
